FAERS Safety Report 7423352-7 (Version None)
Quarter: 2011Q2

REPORT INFORMATION
  Report Type: 
  Country: None (occurrence: None)
  Receive Date: 20110419
  Receipt Date: 20110405
  Transmission Date: 20111010
  Serious: Yes (Other)
  Sender: FDA-Public Use
  Company Number: PHHY2011BR29264

PATIENT
  Sex: Female
  Weight: 92 kg

DRUGS (5)
  1. LEXOTAN [Concomitant]
     Dosage: 3 MG, ONE TABLET, DAILY
     Route: 048
  2. METHOTREXATE [Concomitant]
     Dosage: 2.5 MG, BID
  3. ALENDRONATE SODIUM [Concomitant]
  4. PROTOS [Concomitant]
     Dosage: 2 MG, ONE SACHET, DAILY
     Route: 048
  5. DIOVAN HCT [Suspect]
     Indication: HYPERTENSION
     Dosage: 320/12.5 MG, ONE TABLET DAILY
     Route: 048
     Dates: start: 20080101

REACTIONS (5)
  - OSTEOPOROSIS [None]
  - PRURITUS [None]
  - FEELING ABNORMAL [None]
  - PAIN [None]
  - BLOOD PRESSURE DECREASED [None]
